FAERS Safety Report 13977784 (Version 3)
Quarter: 2017Q4

REPORT INFORMATION
  Report Type: Report from Study
  Country: US (occurrence: US)
  Receive Date: 20170915
  Receipt Date: 20171214
  Transmission Date: 20180321
  Serious: Yes (Hospitalization)
  Sender: FDA-Public Use
  Company Number: PHHO2017US012996

PATIENT
  Age: 10 Year
  Sex: Male

DRUGS (10)
  1. DEXAMETHASONE. [Concomitant]
     Active Substance: DEXAMETHASONE
     Indication: B PRECURSOR TYPE ACUTE LEUKAEMIA
     Dosage: 6 MG, BID
     Route: 048
     Dates: start: 20170626, end: 20170716
  2. CYTARABINE. [Concomitant]
     Active Substance: CYTARABINE
     Indication: B PRECURSOR TYPE ACUTE LEUKAEMIA
     Dosage: 95 MG (DAYS 29-32 AND DAYS 36-39)
     Route: 042
     Dates: start: 20170814
  3. METHOTREXATE. [Suspect]
     Active Substance: METHOTREXATE
     Indication: B PRECURSOR TYPE ACUTE LEUKAEMIA
     Dosage: 15 MG, ONCE/SINGLE
     Route: 037
     Dates: start: 20170626
  4. METHOTREXATE. [Suspect]
     Active Substance: METHOTREXATE
     Dosage: 3410 MG, ONCE/SINGLE
     Route: 042
     Dates: start: 20170626
  5. THIOGUANINE [Concomitant]
     Active Substance: THIOGUANINE
     Indication: B PRECURSOR TYPE ACUTE LEUKAEMIA
     Dosage: 80 MG, QD (60-80 MG, DAILY DAYS 29-42)
     Route: 048
     Dates: start: 20170814
  6. INC424A [Suspect]
     Active Substance: RUXOLITINIB
     Indication: B PRECURSOR TYPE ACUTE LEUKAEMIA
     Dosage: 25 MG, QD
     Route: 048
     Dates: start: 20170202
  7. DOXORUBICIN [Concomitant]
     Active Substance: DOXORUBICIN
     Indication: B PRECURSOR TYPE ACUTE LEUKAEMIA
     Dosage: 30 MG, ONCE/SINGLE
     Route: 042
     Dates: start: 20170626, end: 20170710
  8. CYCLOPHOSPHAMIDE. [Concomitant]
     Active Substance: CYCLOPHOSPHAMIDE
     Indication: B PRECURSOR TYPE ACUTE LEUKAEMIA
     Dosage: 1270 MG, ONCE/SINGLE
     Route: 042
     Dates: start: 20170814
  9. VINCRISTINE [Concomitant]
     Active Substance: VINCRISTINE
     Indication: B PRECURSOR TYPE ACUTE LEUKAEMIA
     Dosage: 1.9 MG, ONCE/SINGLE
     Route: 042
     Dates: start: 20170626
  10. PEGASPARGASE [Concomitant]
     Active Substance: PEGASPARGASE
     Indication: B PRECURSOR TYPE ACUTE LEUKAEMIA
     Dosage: 3175 U, ONCE/SINGLE
     Route: 042
     Dates: start: 20170629, end: 20170828

REACTIONS (1)
  - Febrile neutropenia [Recovered/Resolved]

NARRATIVE: CASE EVENT DATE: 20170904
